FAERS Safety Report 25969197 (Version 2)
Quarter: 2025Q4

REPORT INFORMATION
  Report Type: Spontaneous
  Country: CN (occurrence: CN)
  Receive Date: 20251028
  Receipt Date: 20251031
  Transmission Date: 20260118
  Serious: Yes (Death, Other)
  Sender: GILEAD
  Company Number: CN-SHANGHAI FOSUN KAIROS BIOTECHNOLOGY CO., LTD-FOSUNKAIROS-20251301

PATIENT
  Age: 78 Year
  Sex: Female

DRUGS (3)
  1. YESCARTA [Suspect]
     Active Substance: AXICABTAGENE CILOLEUCEL
     Indication: Diffuse large B-cell lymphoma
     Dosage: SINGLE DOSE, WITH A DOSE OF 9.8*10^7 CAR-T CELLS
     Route: 042
     Dates: start: 20250902, end: 20250902
  2. CYCLOPHOSPHAMIDE [Concomitant]
     Active Substance: CYCLOPHOSPHAMIDE
     Dosage: UNK
     Route: 065
     Dates: start: 20250828, end: 20250830
  3. FLUDARABINE [Concomitant]
     Active Substance: FLUDARABINE PHOSPHATE
     Dosage: UNK
     Route: 065
     Dates: start: 20250828, end: 20250830

REACTIONS (4)
  - Cytokine release syndrome [Fatal]
  - Septic shock [Fatal]
  - Myelosuppression [Unknown]
  - Pyrexia [Unknown]

NARRATIVE: CASE EVENT DATE: 20250905
